FAERS Safety Report 13395720 (Version 1)
Quarter: 2017Q2

REPORT INFORMATION
  Report Type: Spontaneous
  Country: US (occurrence: US)
  Receive Date: 20170402
  Receipt Date: 20170402
  Transmission Date: 20170830
  Serious: Yes (Hospitalization, Disabling, Other)
  Sender: FDA-Public Use
  Company Number: None

PATIENT
  Age: 92 Year
  Sex: Female
  Weight: 46.35 kg

DRUGS (1)
  1. ATIVAN [Suspect]
     Active Substance: LORAZEPAM

REACTIONS (5)
  - Quality of life decreased [None]
  - Confusional state [None]
  - Hallucination [None]
  - Cardiac failure congestive [None]
  - Depression [None]

NARRATIVE: CASE EVENT DATE: 20161121
